FAERS Safety Report 5740874-5 (Version None)
Quarter: 2008Q2

REPORT INFORMATION
  Report Type: 
  Country: None (occurrence: None)
  Receive Date: 20080516
  Receipt Date: 20080514
  Transmission Date: 20081010
  Serious: Yes (Death, Hospitalization)
  Sender: FDA-Public Use
  Company Number: CN-BOEHRINGER INGELHEIM GMBH, GERMANY-2008-BP-07584SG

PATIENT
  Age: 85 Year
  Sex: Female

DRUGS (1)
  1. MICARDIS [Suspect]
     Indication: HYPERTENSION
     Route: 048
     Dates: start: 20080501, end: 20080501

REACTIONS (2)
  - BLOOD CREATININE INCREASED [None]
  - DEATH [None]
